FAERS Safety Report 4940757-4 (Version None)
Quarter: 2006Q1

REPORT INFORMATION
  Report Type: 
  Country: None (occurrence: None)
  Receive Date: 20060307
  Receipt Date: 20060227
  Transmission Date: 20060701
  Serious: Yes (Death)
  Sender: FDA-Public Use
  Company Number: 12896

PATIENT
  Age: 71 Year
  Sex: Male

DRUGS (6)
  1. AMIODARONE HCL [Suspect]
     Indication: ATRIAL FIBRILLATION
     Dosage: 200 MG DAILY PO
     Route: 048
     Dates: start: 19910101
  2. WARFARIN SODIUM [Concomitant]
  3. THYROXINE [Concomitant]
  4. RISEDRONATE [Concomitant]
  5. ATORVASTATIN CALCIUM [Concomitant]
  6. PERINDOPRIL [Concomitant]

REACTIONS (2)
  - METASTASIS [None]
  - PAPILLARY THYROID CANCER [None]
